FAERS Safety Report 5884213-8 (Version None)
Quarter: 2008Q3

REPORT INFORMATION
  Report Type: 
  Country: None (occurrence: None)
  Receive Date: 20080911
  Receipt Date: 20080829
  Transmission Date: 20090109
  Serious: Yes (Hospitalization)
  Sender: FDA-Public Use
  Company Number: 2008002180

PATIENT
  Age: 66 Year
  Sex: Male
  Weight: 84.4 kg

DRUGS (11)
  1. TARCEVA [Suspect]
     Indication: OESOPHAGEAL CARCINOMA
     Dosage: (100 MG, QD), ORAL
     Route: 048
     Dates: start: 20080728
  2. BEVACIZUMAB (INJECTION) [Suspect]
     Indication: OESOPHAGEAL CARCINOMA
     Dosage: (15 MG/KG, DAYS 1 + 22), INTRAVENOUS
     Route: 042
     Dates: start: 20080728
  3. FLUOROURACIL [Suspect]
     Indication: OESOPHAGEAL CARCINOMA
     Dosage: (225 MG/M2, QD), INTRAVENOUS
     Route: 042
     Dates: start: 20080728
  4. CARBOPLATIN [Suspect]
     Indication: OESOPHAGEAL CARCINOMA
     Dosage: (5 , DAYS 1 + 22), INTRAVENOUS
     Route: 042
     Dates: start: 20080728
  5. PACLITAXEL [Suspect]
     Indication: OESOPHAGEAL CARCINOMA
     Dosage: (200 MG, DAYS 1 + 22), INTRAVENOUS
     Route: 042
     Dates: start: 20080728
  6. RARDIOTHERAPY [Suspect]
     Indication: OESOPHAGEAL CARCINOMA
  7. MULTI-VITAMINS [Concomitant]
  8. OXYCODONE HCL [Concomitant]
  9. ACETAMINOPHEN [Concomitant]
  10. PANTOPRAZOLE SODIUM [Concomitant]
  11. ONDANSETRON HYDROCHLORIDE [Concomitant]

REACTIONS (8)
  - DEHYDRATION [None]
  - DIARRHOEA [None]
  - DYSPHAGIA [None]
  - LEUKOPENIA [None]
  - LIP PAIN [None]
  - MUCOSAL INFLAMMATION [None]
  - OESOPHAGITIS [None]
  - ORAL PAIN [None]
